FAERS Safety Report 21792230 (Version 1)
Quarter: 2022Q4

REPORT INFORMATION
  Report Type: Report from Study
  Country: US (occurrence: US)
  Receive Date: 20221229
  Receipt Date: 20221229
  Transmission Date: 20230113
  Serious: Yes (Other)
  Sender: FDA-Public Use
  Company Number: US-BIOGEN-2022BI01178013

PATIENT
  Sex: Female

DRUGS (2)
  1. VUMERITY [Suspect]
     Active Substance: DIROXIMEL FUMARATE
     Indication: Multiple sclerosis
     Route: 050
  2. VITAMIN D3 MAX [Concomitant]
     Indication: Product used for unknown indication
     Route: 050

REACTIONS (3)
  - Full blood count decreased [Unknown]
  - Product dose omission issue [Unknown]
  - Flushing [Unknown]
